FAERS Safety Report 4568019-8 (Version None)
Quarter: 2005Q1

REPORT INFORMATION
  Report Type: 
  Country: None (occurrence: None)
  Receive Date: 20050128
  Receipt Date: 20050112
  Transmission Date: 20050727
  Serious: Yes (Disabling)
  Sender: FDA-Public Use
  Company Number: A01200500226

PATIENT
  Age: 57 Year
  Sex: Male

DRUGS (1)
  1. XATRAL - (ALFUZOSIN) - TABLET - UNIT DOSE : UNKNOWN [Suspect]
     Indication: BENIGN PROSTATIC HYPERPLASIA
     Dosage: ORAL
     Route: 048
     Dates: start: 20021220, end: 20041008

REACTIONS (3)
  - ASTHMA [None]
  - CONDITION AGGRAVATED [None]
  - RHINITIS [None]
